FAERS Safety Report 4327765-1 (Version None)
Quarter: 2004Q1

REPORT INFORMATION
  Report Type: 
  Country: None (occurrence: None)
  Receive Date: 20040331
  Receipt Date: 20030613
  Transmission Date: 20041129
  Serious: Yes (Death, Hospitalization)
  Sender: FDA-Public Use
  Company Number: PHBS2003JP06217

PATIENT
  Age: 64 Year
  Sex: Female

DRUGS (2)
  1. GLEEVEC [Suspect]
     Indication: GASTROINTESTINAL CARCINOMA
     Dosage: UNK, Q48H
     Route: 048
     Dates: start: 20020101
  2. GLEEVEC [Suspect]
     Dosage: 200 MG, BID
     Route: 048
     Dates: start: 20020301, end: 20020101

REACTIONS (9)
  - ABDOMINAL PAIN [None]
  - ABDOMINAL PAIN UPPER [None]
  - DIARRHOEA [None]
  - LIVER CARCINOMA RUPTURED [None]
  - METASTASES TO PERITONEUM [None]
  - PERITONITIS [None]
  - RASH [None]
  - THROMBOCYTOPENIA [None]
  - TUMOUR HAEMORRHAGE [None]
